FAERS Safety Report 16534273 (Version 1)
Quarter: 2019Q3

REPORT INFORMATION
  Report Type: Report from Study
  Country: UG (occurrence: UG)
  Receive Date: 20190705
  Receipt Date: 20190705
  Transmission Date: 20191004
  Serious: Yes (Congenital Anomaly, Other)
  Sender: FDA-Public Use
  Company Number: UG-VIIV HEALTHCARE LIMITED-UG2018GSK170600

PATIENT
  Age: 1 Day
  Sex: Male
  Weight: 3.6 kg

DRUGS (1)
  1. DOLUTEGRAVIR [Suspect]
     Active Substance: DOLUTEGRAVIR
     Indication: HIV INFECTION
     Dosage: UNK
     Route: 064
     Dates: start: 20180530

REACTIONS (2)
  - Congenital umbilical hernia [Not Recovered/Not Resolved]
  - Birth mark [Not Recovered/Not Resolved]

NARRATIVE: CASE EVENT DATE: 20180629
